FAERS Safety Report 26092444 (Version 1)
Quarter: 2025Q4

REPORT INFORMATION
  Report Type: Spontaneous
  Country: US (occurrence: None)
  Receive Date: 20251125
  Receipt Date: 20251125
  Transmission Date: 20260118
  Serious: Yes (Other)
  Sender: FDA-CTU
  Company Number: None

PATIENT
  Sex: Female

DRUGS (2)
  1. MONTELUKAST [Suspect]
     Active Substance: MONTELUKAST
     Indication: Multiple allergies
     Dosage: OTHER QUANTITY : 1 TABLET(S);?FREQUENCY : AT BEDTIME;?
     Route: 048
     Dates: start: 20251111, end: 20251124
  2. UNSPECIFIED INGREDIENT [Concomitant]
     Active Substance: UNSPECIFIED INGREDIENT

REACTIONS (9)
  - Nausea [None]
  - Dizziness [None]
  - Feeling abnormal [None]
  - Asthenopia [None]
  - Pruritus [None]
  - Nasal pruritus [None]
  - Eye pruritus [None]
  - Intentional dose omission [None]
  - Therapy cessation [None]

NARRATIVE: CASE EVENT DATE: 20251125
